FAERS Safety Report 10589794 (Version 1)
Quarter: 2014Q4

REPORT INFORMATION
  Report Type: Spontaneous
  Country: US (occurrence: None)
  Receive Date: 20141117
  Receipt Date: 20141117
  Transmission Date: 20150529
  Serious: Yes (Hospitalization)
  Sender: FDA-Public Use
  Company Number: None

PATIENT
  Age: 63 Year
  Sex: Male
  Weight: 72.6 kg

DRUGS (2)
  1. LENALIDOMIDE [Suspect]
     Active Substance: LENALIDOMIDE
     Dosage: DOSE PERMANENTLY DISCONTINUED 10/01/2014 DUE TO PE
     Dates: end: 20141001
  2. RITUXIMAB (MOAB C2B8 ANTI CD20, CHIMERIC) [Suspect]
     Active Substance: RITUXIMAB
     Dosage: 700 MG FOR STEP 2, RITUXIMAB IS ADMINISTERED EVERY 8 WEEKS

REACTIONS (6)
  - Pneumonia fungal [None]
  - Deep vein thrombosis [None]
  - Septic embolus [None]
  - Pulmonary embolism [None]
  - Bronchopulmonary aspergillosis [None]
  - Pulmonary infarction [None]

NARRATIVE: CASE EVENT DATE: 20141002
